FAERS Safety Report 6588918-5 (Version None)
Quarter: 2010Q1

REPORT INFORMATION
  Report Type: 
  Country: None (occurrence: None)
  Receive Date: 20100218
  Receipt Date: 20100212
  Transmission Date: 20100710
  Serious: Yes (Death)
  Sender: FDA-Public Use
  Company Number: KR-BRISTOL-MYERS SQUIBB COMPANY-14976674

PATIENT
  Age: 66 Year
  Sex: Female
  Weight: 62 kg

DRUGS (3)
  1. CISPLATIN [Suspect]
     Indication: METASTATIC GASTRIC CANCER
     Route: 042
     Dates: start: 20081119, end: 20100106
  2. SUNITINIB MALATE [Suspect]
     Indication: METASTATIC GASTRIC CANCER
     Dosage: 2/1 SCHEDULE
     Route: 048
     Dates: start: 20081119, end: 20100120
  3. XELODA [Suspect]
     Indication: METASTATIC GASTRIC CANCER
     Dosage: ON DAY 1-14
     Route: 048
     Dates: start: 20081119, end: 20100120

REACTIONS (1)
  - SUDDEN DEATH [None]
